FAERS Safety Report 6102247-5 (Version None)
Quarter: 2009Q1

REPORT INFORMATION
  Report Type: 
  Country: None (occurrence: None)
  Receive Date: 20090304
  Receipt Date: 20090219
  Transmission Date: 20090719
  Serious: Yes (Death)
  Sender: FDA-Public Use
  Company Number: JP-PFIZER INC-2009166987

PATIENT
  Sex: Male

DRUGS (19)
  1. ADRIACIN [Suspect]
     Indication: ANAPLASTIC LARGE CELL LYMPHOMA T- AND NULL-CELL TYPES
     Dosage: 70 MG, UNK
     Route: 041
     Dates: start: 20070105, end: 20070105
  2. ENDOXAN [Suspect]
     Indication: ANAPLASTIC LARGE CELL LYMPHOMA T- AND NULL-CELL TYPES
     Dosage: 1000 MG, UNK
     Route: 041
     Dates: start: 20070105, end: 20070105
  3. ONCOVIN [Suspect]
     Indication: ANAPLASTIC LARGE CELL LYMPHOMA T- AND NULL-CELL TYPES
     Dosage: 2 MG, UNK
     Dates: start: 20070105, end: 20070105
  4. PREDNISOLONE [Concomitant]
     Dosage: 100 MG, 1X/DAY
     Route: 048
     Dates: start: 20070105, end: 20070109
  5. DECADRON [Concomitant]
     Dosage: 16 MG, 1X/DAY
     Route: 041
     Dates: start: 20070105, end: 20070109
  6. SOLDEM 3A [Concomitant]
     Dosage: 1000 ML, 1X/DAY
     Route: 041
     Dates: start: 20061227, end: 20070122
  7. FULCALIQ [Concomitant]
     Dosage: 2006 ML, 1X/DAY
     Route: 041
     Dates: start: 20070105, end: 20070122
  8. NEO-MINOPHAGEN C [Concomitant]
     Dosage: 20 ML, 1X/DAY
     Route: 042
     Dates: start: 20070105, end: 20070122
  9. TATHION [Concomitant]
     Dosage: 200 MG, 1X/DAY
     Route: 042
     Dates: start: 20070105, end: 20070122
  10. LASIX [Concomitant]
     Dosage: 20 MG, 1X/DAY
     Route: 042
     Dates: start: 20070107, end: 20070122
  11. PANTOL [Concomitant]
     Dosage: 1000 MG, 1X/DAY
     Route: 041
     Dates: start: 20070108, end: 20070122
  12. FLUMARIN [Concomitant]
     Dosage: 2 G, 2X/DAY
     Route: 041
     Dates: start: 20070105, end: 20070110
  13. THEOPHYLLINE [Concomitant]
     Dosage: 200 MG, 1X/DAY
     Route: 041
     Dates: start: 20070117, end: 20070117
  14. NEOPHYLLIN [Concomitant]
     Dosage: 250 MG, 1X/DAY
     Route: 041
     Dates: start: 20070117, end: 20070117
  15. CIPROXAN [Concomitant]
     Dosage: 1000 MG, 1X/DAY
     Route: 041
     Dates: start: 20070117, end: 20070117
  16. SOLU-MEDROL [Concomitant]
     Dosage: 500 MG, 1X/DAY
     Route: 041
     Dates: start: 20070117, end: 20070117
  17. GLUCOSE [Concomitant]
     Dosage: 250 ML, 1X/DAY
     Route: 041
     Dates: start: 20070127, end: 20070127
  18. ROPION [Concomitant]
     Dosage: 5 ML, 1X/DAY
     Route: 041
     Dates: start: 20070117, end: 20070117
  19. GASTER [Concomitant]
     Dosage: 20 MG, 2X/DAY
     Dates: start: 20070118, end: 20070122

REACTIONS (1)
  - BONE MARROW FAILURE [None]
